FAERS Safety Report 7166690-8 (Version None)
Quarter: 2010Q4

REPORT INFORMATION
  Report Type: 
  Country: None (occurrence: None)
  Receive Date: 20101216
  Receipt Date: 20101208
  Transmission Date: 20110411
  Serious: Yes (Hospitalization)
  Sender: FDA-Public Use
  Company Number: TR-BAXTER-2010BH029701

PATIENT
  Age: 29 Month
  Sex: Male
  Weight: 14 kg

DRUGS (1)
  1. GAMMAGARD LIQUID [Suspect]
     Indication: HYPOGAMMAGLOBULINAEMIA
     Route: 042
     Dates: start: 20101208, end: 20101208

REACTIONS (3)
  - CHILLS [None]
  - PYREXIA [None]
  - RASH [None]
